FAERS Safety Report 8429239-5 (Version None)
Quarter: 2012Q2

REPORT INFORMATION
  Report Type: 
  Country: None (occurrence: None)
  Receive Date: 20120612
  Receipt Date: 20120605
  Transmission Date: 20120825
  Serious: Yes (Hospitalization)
  Sender: FDA-Public Use
  Company Number: PHHY2012MX049229

PATIENT
  Sex: Male

DRUGS (3)
  1. AVELOX [Concomitant]
  2. STALEVO 100 [Suspect]
     Dosage: 200/50/12.5 MG
     Dates: start: 20120531
  3. COMBIVENT [Concomitant]

REACTIONS (1)
  - PNEUMONIA [None]
